FAERS Safety Report 13205948 (Version 2)
Quarter: 2017Q2

REPORT INFORMATION
  Report Type: Report from Study
  Country: US (occurrence: US)
  Receive Date: 20170209
  Receipt Date: 20170503
  Transmission Date: 20170830
  Serious: Yes (Hospitalization, Other)
  Sender: FDA-Public Use
  Company Number: US-SAOL THERAPEUTICS-2017SAO00240

PATIENT

DRUGS (46)
  1. COMPOUNDED BACLOFEN [Suspect]
     Active Substance: BACLOFEN
     Dosage: 96.77 ?G, \DAY
     Route: 037
     Dates: start: 20160426, end: 20160630
  2. COMPOUNDED BACLOFEN [Suspect]
     Active Substance: BACLOFEN
     Dosage: 157.68 ?G, \DAY
     Route: 037
     Dates: start: 20160630
  3. COMPOUNDED BACLOFEN [Suspect]
     Active Substance: BACLOFEN
     Dosage: 341.7 ?G, \DAY
     Route: 037
     Dates: start: 20160927
  4. BUPIVACAINE. [Suspect]
     Active Substance: BUPIVACAINE
     Dosage: 17.479 MG, \DAY
     Route: 037
     Dates: start: 20160315, end: 20160426
  5. BUPIVACAINE. [Suspect]
     Active Substance: BUPIVACAINE
     Dosage: 7.995 MG, \DAY
     Route: 037
     Dates: start: 20160630
  6. BUPIVACAINE. [Suspect]
     Active Substance: BUPIVACAINE
     Dosage: 22.183 MG, \DAY
     Route: 037
     Dates: start: 20160426, end: 20160630
  7. BUPIVACAINE. [Suspect]
     Active Substance: BUPIVACAINE
     Dosage: 12.491 MG, \DAY
     Route: 037
     Dates: start: 20160811
  8. BUPIVACAINE. [Suspect]
     Active Substance: BUPIVACAINE
     Dosage: 14.982 MG, \DAY
     Route: 037
     Dates: start: 20160913, end: 20160927
  9. COMPOUNDED BACLOFEN [Suspect]
     Active Substance: BACLOFEN
     Dosage: 116.53 ?G, \DAY
     Route: 037
     Dates: start: 20160315, end: 20160426
  10. COMPOUNDED BACLOFEN [Suspect]
     Active Substance: BACLOFEN
     Dosage: 196.01 ?G, \DAY
     Route: 037
     Dates: start: 20160714, end: 20160811
  11. COMPOUNDED BACLOFEN [Suspect]
     Active Substance: BACLOFEN
     Dosage: 293.83 ?G, \DAY
     Route: 037
     Dates: start: 20160913, end: 20160927
  12. HYDROMORPHONE HCL [Suspect]
     Active Substance: HYDROMORPHONE HYDROCHLORIDE
     Dosage: 1.599 MG, \DAY
     Route: 037
     Dates: start: 20160630
  13. CLONIDINE. [Suspect]
     Active Substance: CLONIDINE
     Dosage: 74.91 ?G, \DAY
     Route: 037
     Dates: start: 20160913, end: 20160927
  14. COMPOUNDED BACLOFEN [Suspect]
     Active Substance: BACLOFEN
     Dosage: 167.21 ?G, \DAY
     Route: 037
     Dates: start: 20160315, end: 20160426
  15. COMPOUNDED BACLOFEN [Suspect]
     Active Substance: BACLOFEN
     Dosage: 147.89 ?G, \DAY
     Route: 037
     Dates: start: 20160426, end: 20160630
  16. COMPOUNDED BACLOFEN [Suspect]
     Active Substance: BACLOFEN
     Dosage: 133.35 ?G, \DAY
     Route: 037
     Dates: start: 20160714, end: 20160811
  17. HYDROMORPHONE HCL [Suspect]
     Active Substance: HYDROMORPHONE HYDROCHLORIDE
     Dosage: 2.5082 MG, \DAY
     Route: 037
     Dates: start: 20160315, end: 20160426
  18. HYDROMORPHONE HCL [Suspect]
     Active Substance: HYDROMORPHONE HYDROCHLORIDE
     Dosage: 1.4515 MG, \DAY
     Route: 037
     Dates: start: 20160426, end: 20160630
  19. HYDROMORPHONE HCL [Suspect]
     Active Substance: HYDROMORPHONE HYDROCHLORIDE
     Dosage: 3.428 MG, \DAY
     Route: 037
     Dates: start: 20160811
  20. HYDROMORPHONE HCL [Suspect]
     Active Substance: HYDROMORPHONE HYDROCHLORIDE
     Dosage: 2.9965 MG, \DAY
     Route: 037
     Dates: start: 20160913, end: 20160927
  21. HYDROMORPHONE HCL [Suspect]
     Active Substance: HYDROMORPHONE HYDROCHLORIDE
     Dosage: 3.9177 MG, \DAY
     Route: 037
     Dates: start: 20160913, end: 20160927
  22. BUPIVACAINE. [Suspect]
     Active Substance: BUPIVACAINE
     Dosage: 14.701 MG, \DAY
     Route: 037
     Dates: start: 20160714, end: 20160811
  23. BUPIVACAINE. [Suspect]
     Active Substance: BUPIVACAINE
     Dosage: 19.589 MG, \DAY
     Route: 037
     Dates: start: 20160913, end: 20160927
  24. BUPIVACAINE. [Suspect]
     Active Substance: BUPIVACAINE
     Dosage: 17.519 MG, \DAY
     Route: 037
     Dates: start: 20161215
  25. BUPIVACAINE. [Suspect]
     Active Substance: BUPIVACAINE
     Dosage: 22.780 MG, \DAY
     Route: 037
     Dates: start: 20161215
  26. CLONIDINE. [Suspect]
     Active Substance: CLONIDINE
     Dosage: 87.59 ?G, \DAY
     Route: 037
     Dates: start: 20160927
  27. COMPOUNDED BACLOFEN [Suspect]
     Active Substance: BACLOFEN
     Dosage: 228.56 UNK, \DAY
     Dates: start: 20160811
  28. HYDROMORPHONE HCL [Suspect]
     Active Substance: HYDROMORPHONE HYDROCHLORIDE
     Dosage: 1.7479 MG, \DAY
     Route: 037
     Dates: start: 20160315, end: 20160426
  29. HYDROMORPHONE HCL [Suspect]
     Active Substance: HYDROMORPHONE HYDROCHLORIDE
     Dosage: 2.2183 MG, \DAY
     Route: 037
     Dates: start: 20160426, end: 20160630
  30. HYDROMORPHONE HCL [Suspect]
     Active Substance: HYDROMORPHONE HYDROCHLORIDE
     Dosage: 2.498 MG, \DAY
     Route: 037
     Dates: start: 20160811
  31. CLONIDINE. [Suspect]
     Active Substance: CLONIDINE
     Dosage: 97.94 ?G, \DAY
     Route: 037
     Dates: start: 20160913, end: 20160927
  32. CLONIDINE. [Suspect]
     Active Substance: CLONIDINE
     Dosage: 113.9 ?G, \DAY
     Route: 037
     Dates: start: 20160927
  33. COMPOUNDED BACLOFEN [Suspect]
     Active Substance: BACLOFEN
     Dosage: 224.73 ?G, \DAY
     Route: 037
     Dates: start: 20160913, end: 20160927
  34. HYDROMORPHONE HCL [Suspect]
     Active Substance: HYDROMORPHONE HYDROCHLORIDE
     Dosage: 2.9402 MG, \DAY
     Route: 037
     Dates: start: 20160614, end: 20160811
  35. HYDROMORPHONE HCL [Suspect]
     Active Substance: HYDROMORPHONE HYDROCHLORIDE
     Dosage: 2.365 ?G, \DAY
     Dates: start: 20160630
  36. HYDROMORPHONE HCL [Suspect]
     Active Substance: HYDROMORPHONE HYDROCHLORIDE
     Dosage: 4.556 MG, \DAY
     Route: 037
     Dates: start: 20160927
  37. BUPIVACAINE. [Suspect]
     Active Substance: BUPIVACAINE
     Dosage: 10.001 MG, \DAY
     Route: 037
     Dates: start: 20160714, end: 20160811
  38. COMPOUNDED BACLOFEN [Suspect]
     Active Substance: BACLOFEN
     Dosage: 166.54 ?G, \DAY
     Route: 037
     Dates: start: 20160811
  39. COMPOUNDED BACLOFEN [Suspect]
     Active Substance: BACLOFEN
     Dosage: 262.78 ?G, \DAY
     Route: 037
     Dates: start: 20160927
  40. COMPOUNDED BACLOFEN [Suspect]
     Active Substance: BACLOFEN
     Dosage: UNK
  41. HYDROMORPHONE HCL [Suspect]
     Active Substance: HYDROMORPHONE HYDROCHLORIDE
     Dosage: 2.0002 MG, \DAY
     Route: 037
     Dates: start: 20160714, end: 20160811
  42. BUPIVACAINE. [Suspect]
     Active Substance: BUPIVACAINE
     Dosage: 25.082 MG, \DAY
     Route: 037
     Dates: start: 20160315, end: 20160426
  43. BUPIVACAINE. [Suspect]
     Active Substance: BUPIVACAINE
     Dosage: 14.515 MG, \DAY
     Route: 037
     Dates: start: 20160426, end: 20160630
  44. BUPIVACAINE. [Suspect]
     Active Substance: BUPIVACAINE
     Dosage: 17.142 MG, \DAY
     Route: 037
     Dates: start: 20160811
  45. COMPOUNDED BACLOFEN [Suspect]
     Active Substance: BACLOFEN
     Dosage: 106.6 ?G, \DAY
     Route: 037
     Dates: start: 20160630
  46. HYDROMORPHONE HCL [Suspect]
     Active Substance: HYDROMORPHONE HYDROCHLORIDE
     Dosage: 3.5038 MG, \DAY
     Route: 037
     Dates: start: 20160927

REACTIONS (5)
  - Drug dose omission [Recovered/Resolved]
  - Medical device site pain [Recovered/Resolved]
  - Withdrawal syndrome [Recovered/Resolved]
  - Medical device site swelling [Recovered/Resolved]
  - Hypoaesthesia [Recovered/Resolved]

NARRATIVE: CASE EVENT DATE: 20160426
